FAERS Safety Report 11088704 (Version 4)
Quarter: 2015Q2

REPORT INFORMATION
  Report Type: Report from Study
  Country: US (occurrence: IN)
  Receive Date: 20150504
  Receipt Date: 20150612
  Transmission Date: 20150821
  Serious: Yes (Death)
  Sender: FDA-Public Use
  Company Number: IN-B.I. PHARMACEUTICALS,INC./RIDGEFIELD-2015-BI-08639BI

PATIENT
  Age: 59 Year
  Sex: Male

DRUGS (5)
  1. INSUMAN [Concomitant]
     Active Substance: INSULIN HUMAN
     Indication: TYPE 2 DIABETES MELLITUS
     Dosage: 20 U
     Route: 058
     Dates: start: 20150310
  2. VOGLIBOSE [Concomitant]
     Active Substance: VOGLIBOSE
     Indication: TYPE 2 DIABETES MELLITUS
     Dosage: 0.2 MG
     Route: 048
     Dates: start: 20130511
  3. ROSUVASTATIN [Concomitant]
     Active Substance: ROSUVASTATIN
     Indication: DYSLIPIDAEMIA
     Dosage: 5 MG
     Route: 048
     Dates: start: 20150313
  4. BI 1356 [Suspect]
     Active Substance: LINAGLIPTIN
     Indication: TYPE 2 DIABETES MELLITUS
     Route: 048
     Dates: start: 20120210
  5. METFORMIN [Concomitant]
     Active Substance: METFORMIN HYDROCHLORIDE
     Indication: TYPE 2 DIABETES MELLITUS
     Dosage: 1000 MG
     Route: 048
     Dates: start: 20110922

REACTIONS (8)
  - Respiratory failure [Fatal]
  - Acute kidney injury [Fatal]
  - Lipase increased [Unknown]
  - Lipase increased [Unknown]
  - Chronic obstructive pulmonary disease [Fatal]
  - Bronchopneumonia [Fatal]
  - Sepsis [Fatal]
  - Amylase increased [Unknown]

NARRATIVE: CASE EVENT DATE: 20140410
